FAERS Safety Report 5117117-9 (Version None)
Quarter: 2006Q3

REPORT INFORMATION
  Report Type: 
  Country: None (occurrence: None)
  Receive Date: 20060929
  Receipt Date: 20060918
  Transmission Date: 20061208
  Serious: Yes (Other)
  Sender: FDA-Public Use
  Company Number: AR-ABBOTT-06P-007-0344315-00

PATIENT
  Sex: Female
  Weight: 60.5 kg

DRUGS (4)
  1. HUMIRA [Suspect]
     Indication: RHEUMATOID ARTHRITIS
     Route: 058
     Dates: start: 20060113, end: 20060502
  2. METHOTREXATE SODIUM [Concomitant]
     Indication: RHEUMATOID ARTHRITIS
     Route: 048
     Dates: start: 19870812, end: 20060430
  3. MELOXICAM [Concomitant]
     Indication: RHEUMATOID ARTHRITIS
     Route: 048
     Dates: start: 20060113, end: 20060430
  4. MEPREDNISONE [Concomitant]
     Indication: RHEUMATOID ARTHRITIS
     Route: 048
     Dates: start: 19791204

REACTIONS (5)
  - ABDOMINAL PAIN UPPER [None]
  - ACHOLIA [None]
  - CHOLURIA [None]
  - HEPATITIS [None]
  - RASH [None]
